FAERS Safety Report 19351158 (Version 1)
Quarter: 2021Q2

REPORT INFORMATION
  Report Type: Spontaneous
  Country: ES (occurrence: ES)
  Receive Date: 20210531
  Receipt Date: 20210531
  Transmission Date: 20210717
  Serious: Yes (Death)
  Sender: FDA-Public Use
  Company Number: ES-ACCORD-226614

PATIENT
  Age: 72 Year
  Sex: Male
  Weight: 81 kg

DRUGS (5)
  1. OMEPRAZOLE. [Concomitant]
     Active Substance: OMEPRAZOLE
     Dates: start: 2019
  2. FERPLEX [Concomitant]
     Dosage: 40 MG ORAL SOLUTION
     Dates: start: 2019
  3. HIBOR [Concomitant]
     Dosage: 10,000 IU ANTI?XA / 0.4 ML SOLUTION FOR INJECTION IN PRE?FILLED SYRINGES
     Dates: start: 2019
  4. PACLITAXEL ACCORD [Suspect]
     Active Substance: PACLITAXEL
     Indication: GASTRIC CANCER
     Dosage: PACLITAXEL CYCLES: WEEKLY 1,8,15 EVERY 28 DAYS?STRENGTH: 6 MG/ML
     Dates: start: 20200903, end: 20201008
  5. ZOLPIDEM [Concomitant]
     Active Substance: ZOLPIDEM TARTRATE
     Dosage: 10 MG TABLET
     Dates: start: 2019

REACTIONS (1)
  - Pneumonitis [Fatal]

NARRATIVE: CASE EVENT DATE: 20201013
